FAERS Safety Report 4441820-7 (Version None)
Quarter: 2004Q3

REPORT INFORMATION
  Report Type: 
  Country: None (occurrence: None)
  Receive Date: 20040907
  Receipt Date: 20040528
  Transmission Date: 20050211
  Serious: Yes (Hospitalization, Disabling)
  Sender: FDA-Public Use
  Company Number: FR-ROCHE-369276

PATIENT
  Age: 60 Year
  Sex: Male
  Weight: 72 kg

DRUGS (4)
  1. ROVALCYTE [Suspect]
     Route: 048
     Dates: start: 20031007, end: 20040414
  2. ROVALCYTE [Suspect]
     Route: 048
     Dates: start: 20030930, end: 20031007
  3. AUGMENTIN [Suspect]
     Indication: DRUG USE FOR UNKNOWN INDICATION
     Route: 048
     Dates: start: 20040401, end: 20040408
  4. OMEPRAZOLE [Concomitant]
     Route: 048

REACTIONS (1)
  - MACULAR OEDEMA [None]
